FAERS Safety Report 9214895 (Version 2)
Quarter: 2013Q3

REPORT INFORMATION
  Report Type: Report from Study
  Country: JP (occurrence: JP)
  Receive Date: 20130405
  Receipt Date: 20130930
  Transmission Date: 20140515
  Serious: Yes (Life-Threatening, Hospitalization)
  Sender: FDA-Public Use
  Company Number: JP-GLAXOSMITHKLINE-B0720189A

PATIENT
  Age: 43 Year
  Sex: Male
  Weight: 81 kg

DRUGS (17)
  1. REVOLADE [Suspect]
     Indication: IMMUNE THROMBOCYTOPENIC PURPURA
     Route: 048
     Dates: start: 20110304, end: 20110324
  2. REVOLADE [Suspect]
     Indication: IMMUNE THROMBOCYTOPENIC PURPURA
     Route: 048
     Dates: start: 20110325, end: 20110419
  3. NOVOLIN N [Concomitant]
     Dates: end: 20110419
  4. DECADRON [Concomitant]
     Indication: IMMUNE THROMBOCYTOPENIC PURPURA
     Dosage: 2IUAX ALTERNATE DAYS
     Route: 048
     Dates: end: 20110419
  5. DECADRON [Concomitant]
     Indication: IMMUNE THROMBOCYTOPENIC PURPURA
     Dosage: 2IUAX ALTERNATE DAYS
     Route: 048
     Dates: start: 20110517
  6. FAMOTIDINE D [Concomitant]
     Route: 048
     Dates: end: 20110419
  7. FAMOTIDINE D [Concomitant]
     Route: 048
     Dates: start: 20110517
  8. FUROSEMIDE [Concomitant]
     Route: 048
     Dates: end: 20110419
  9. ALDACTONE A [Concomitant]
     Route: 048
     Dates: end: 20110419
  10. BARACLUDE [Concomitant]
     Route: 048
     Dates: end: 20110419
  11. BARACLUDE [Concomitant]
     Route: 048
     Dates: start: 20110517
  12. NU-LOTAN [Concomitant]
     Route: 048
     Dates: end: 20110419
  13. ADALAT [Concomitant]
     Route: 048
     Dates: end: 20110419
  14. BACTRAMIN [Concomitant]
     Indication: PROPHYLAXIS
     Route: 048
     Dates: end: 20110419
  15. BACTRAMIN [Concomitant]
     Indication: PROPHYLAXIS
     Route: 048
     Dates: start: 20110517
  16. KENKETSU GLOVENIN-I-NICHIYAKU [Concomitant]
     Indication: IMMUNE THROMBOCYTOPENIC PURPURA
     Route: 042
     Dates: end: 20110419
  17. KENKETSU GLOVENIN-I-NICHIYAKU [Concomitant]
     Indication: IMMUNE THROMBOCYTOPENIC PURPURA
     Route: 042
     Dates: start: 20110517

REACTIONS (5)
  - Myocardial infarction [Recovered/Resolved]
  - Dehydration [Recovered/Resolved]
  - Atrioventricular block complete [Recovered/Resolved]
  - Headache [Recovered/Resolved]
  - Diarrhoea [Recovered/Resolved]
